FAERS Safety Report 12508380 (Version 1)
Quarter: 2016Q2

REPORT INFORMATION
  Report Type: Spontaneous
  Country: US (occurrence: US)
  Receive Date: 20160629
  Receipt Date: 20160629
  Transmission Date: 20160815
  Serious: Yes (Other)
  Sender: FDA-Public Use
  Company Number: US-SA-2016SA116916

PATIENT
  Age: 61 Year
  Sex: Female

DRUGS (1)
  1. NASACORT ALLERGY 24HR [Suspect]
     Active Substance: TRIAMCINOLONE ACETONIDE
     Indication: HYPERSENSITIVITY
     Dosage: 1 SPRAY EACH NOSTRIL?START DATE 10 DAYS AGO
     Route: 045

REACTIONS (3)
  - Urinary retention [Not Recovered/Not Resolved]
  - Expired product administered [Unknown]
  - Somnolence [Not Recovered/Not Resolved]
